FAERS Safety Report 23145093 (Version 1)
Quarter: 2023Q4

REPORT INFORMATION
  Report Type: Spontaneous
  Country: CN (occurrence: CN)
  Receive Date: 20231103
  Receipt Date: 20231103
  Transmission Date: 20240110
  Serious: Yes (Other)
  Sender: FDA-Public Use
  Company Number: CN-PFIZER INC-PV202300178169

PATIENT
  Age: 8 Year
  Sex: Male
  Weight: 35 kg

DRUGS (2)
  1. AZITHROMYCIN [Suspect]
     Active Substance: AZITHROMYCIN
     Indication: Anti-infective therapy
     Dosage: 0.25 G, 1X/DAY
     Route: 041
     Dates: start: 20231015, end: 20231017
  2. AZITHROMYCIN [Suspect]
     Active Substance: AZITHROMYCIN
     Indication: Pneumonia

REACTIONS (3)
  - Depressed level of consciousness [Recovering/Resolving]
  - Vomiting [Recovering/Resolving]
  - Off label use [Unknown]

NARRATIVE: CASE EVENT DATE: 20231015
